FAERS Safety Report 10164827 (Version 1)
Quarter: 2014Q2

REPORT INFORMATION
  Report Type: Spontaneous
  Country: US (occurrence: US)
  Receive Date: 20140510
  Receipt Date: 20140510
  Transmission Date: 20141212
  Serious: Yes (Hospitalization)
  Sender: FDA-Public Use
  Company Number: US-BRISTOL-MYERS SQUIBB COMPANY-20197588

PATIENT
  Sex: Male

DRUGS (1)
  1. BYDUREON [Suspect]
     Route: 058
     Dates: start: 20140206

REACTIONS (1)
  - Adverse event [Unknown]
